FAERS Safety Report 4982279-0 (Version None)
Quarter: 2006Q2

REPORT INFORMATION
  Report Type: 
  Country: None (occurrence: None)
  Receive Date: 20060425
  Receipt Date: 20060421
  Transmission Date: 20061013
  Serious: Yes (Other)
  Sender: FDA-Public Use
  Company Number: HK-ROCHE-445181

PATIENT
  Age: 45 Year
  Sex: Female

DRUGS (2)
  1. XENICAL [Suspect]
     Route: 048
     Dates: start: 20000215, end: 20000815
  2. XENICAL [Suspect]
     Route: 048

REACTIONS (1)
  - COLON CANCER [None]
